FAERS Safety Report 24835946 (Version 2)
Quarter: 2025Q1

REPORT INFORMATION
  Report Type: Spontaneous
  Country: CA (occurrence: CA)
  Receive Date: 20250113
  Receipt Date: 20250120
  Transmission Date: 20250409
  Serious: Yes (Death, Other)
  Sender: ROCHE
  Company Number: CA-002147023-NVSC2025CA003582

PATIENT
  Age: 81 Year
  Sex: Male

DRUGS (1)
  1. LUCENTIS [Suspect]
     Active Substance: RANIBIZUMAB
     Indication: Diabetic retinal oedema
     Dosage: UNK (BOTH EYE) OU, Q2M
     Route: 050
     Dates: start: 20140703, end: 20241029

REACTIONS (3)
  - Death [Fatal]
  - Gastrointestinal carcinoma [Unknown]
  - Atrioventricular block [Unknown]
